FAERS Safety Report 5507198-2 (Version None)
Quarter: 2007Q4

REPORT INFORMATION
  Report Type: 
  Country: None (occurrence: None)
  Receive Date: 20071102
  Receipt Date: 20071027
  Transmission Date: 20080405
  Serious: Yes (Other)
  Sender: FDA-Public Use
  Company Number: 2007SP021914

PATIENT
  Age: 59 Year
  Sex: Female

DRUGS (2)
  1. PEG-INTRON [Suspect]
     Indication: HEPATITIS C
     Dosage: ; SC
     Route: 058
     Dates: start: 20070710
  2. RIBAVIRIN [Suspect]
     Indication: HEPATITIS C
     Dosage: ; PO
     Route: 048
     Dates: start: 20070710

REACTIONS (7)
  - ABDOMINAL PAIN UPPER [None]
  - DIARRHOEA [None]
  - DYSPNOEA [None]
  - FEELING HOT [None]
  - PORTAL HYPERTENSION [None]
  - THYROID DISORDER [None]
  - VOMITING [None]
